FAERS Safety Report 6503544-1 (Version None)
Quarter: 2009Q4

REPORT INFORMATION
  Report Type: 
  Country: None (occurrence: None)
  Receive Date: 20091217
  Receipt Date: 20091214
  Transmission Date: 20100525
  Serious: Yes (Life-Threatening, Other)
  Sender: FDA-Public Use
  Company Number: FR-BAYER-200942773GPV

PATIENT
  Age: 71 Year
  Sex: Male

DRUGS (3)
  1. NEXAVAR [Suspect]
     Indication: RENAL CANCER
     Dosage: TOTAL DAILY DOSE: 400 MG
     Route: 048
     Dates: start: 20060701, end: 20070826
  2. PARIET [Concomitant]
     Dosage: AS USED: 10 MG
     Route: 048
     Dates: end: 20070826
  3. PRAXILENE [Concomitant]
     Indication: ARTERIAL DISORDER
     Dosage: TOTAL DAILY DOSE: 3 DF
     Route: 048

REACTIONS (4)
  - ACUTE PULMONARY OEDEMA [None]
  - CHEST PAIN [None]
  - HAEMOPTYSIS [None]
  - MYOCARDIAL INFARCTION [None]
